FAERS Safety Report 9613946 (Version 1)
Quarter: 2013Q4

REPORT INFORMATION
  Report Type: Spontaneous
  Country: JP (occurrence: JP)
  Receive Date: 20131011
  Receipt Date: 20131011
  Transmission Date: 20140711
  Serious: Yes (Other)
  Sender: FDA-Public Use
  Company Number: JP-MYLANLABS-2013S1022284

PATIENT
  Age: 85 Year
  Sex: Female

DRUGS (6)
  1. SEVOFLURANE [Suspect]
     Indication: GENERAL ANAESTHESIA
  2. SEVOFLURANE [Suspect]
     Indication: MAINTENANCE OF ANAESTHESIA
  3. REMIFENTANIL [Suspect]
     Indication: MAINTENANCE OF ANAESTHESIA
  4. FENTANYL [Suspect]
     Indication: GENERAL ANAESTHESIA
  5. PROPOFOL [Suspect]
     Indication: GENERAL ANAESTHESIA
  6. ROCURONIUM [Suspect]
     Indication: GENERAL ANAESTHESIA

REACTIONS (1)
  - Delayed recovery from anaesthesia [Recovered/Resolved]
